FAERS Safety Report 16069502 (Version 1)
Quarter: 2019Q1

REPORT INFORMATION
  Report Type: Report from Study
  Country: GB (occurrence: GB)
  Receive Date: 20190313
  Receipt Date: 20190313
  Transmission Date: 20190418
  Serious: Yes (Other)
  Sender: FDA-Public Use
  Company Number: GB-ROCHE-2282572

PATIENT
  Sex: Female

DRUGS (5)
  1. LEVOTHYROXIN [Concomitant]
     Active Substance: LEVOTHYROXINE
     Indication: HYPOTHYROIDISM
     Route: 048
     Dates: start: 1988
  2. OBINUTUZUMAB. [Suspect]
     Active Substance: OBINUTUZUMAB
     Indication: CHRONIC LYMPHOCYTIC LEUKAEMIA
     Dosage: LAST DOSE ADMINISTERED PRIOR TO EVENT ONSET ON 30/AUG/2016: 1000 MG
     Route: 042
     Dates: start: 20160412
  3. IBRUTINIB [Suspect]
     Active Substance: IBRUTINIB
     Indication: CHRONIC LYMPHOCYTIC LEUKAEMIA
     Dosage: LAST DOSE ADMINISTERED PRIOR TO EVENT ONSET ON 04/MAR/2019: 120 MG
     Route: 048
     Dates: start: 20160412
  4. COTRIMOXAZOLE [Concomitant]
     Active Substance: SULFAMETHOXAZOLE\TRIMETHOPRIM
     Indication: PROPHYLAXIS
     Dosage: ON EVERY MONDAY AND THURSDAY
     Route: 048
     Dates: start: 20180215
  5. GLUCOSAMINE SULPHATE [Concomitant]
     Active Substance: GLUCOSAMINE
     Indication: ARTHRALGIA
     Route: 065
     Dates: start: 2009

REACTIONS (1)
  - Malignant melanoma [Recovered/Resolved]

NARRATIVE: CASE EVENT DATE: 20190105
